FAERS Safety Report 7557820-4 (Version None)
Quarter: 2011Q2

REPORT INFORMATION
  Report Type: 
  Country: None (occurrence: None)
  Receive Date: 20110620
  Receipt Date: 20110616
  Transmission Date: 20111010
  Serious: Yes (Hospitalization, Other)
  Sender: FDA-Public Use
  Company Number: FR-BRISTOL-MYERS SQUIBB COMPANY-14646103

PATIENT
  Age: 64 Year
  Sex: Male
  Weight: 51 kg

DRUGS (5)
  1. CISPLATIN [Suspect]
     Indication: ANAL CANCER
     Dosage: MOST RECENT INFUSION:14APR09.
     Route: 042
     Dates: start: 20090414
  2. FLUOROURACIL [Suspect]
     Indication: ANAL CANCER
     Dosage: MOST RECENT INFUSION:17APR09.
     Route: 042
     Dates: start: 20090414
  3. CETUXIMAB [Suspect]
     Indication: ANAL CANCER
     Dosage: MOST RECENT INFUSION:21APR09.
     Route: 042
     Dates: start: 20090407
  4. LOPRAZOLAM [Concomitant]
     Indication: ANXIETY
     Route: 048
     Dates: start: 20090301
  5. XANAX [Concomitant]
     Route: 048

REACTIONS (3)
  - THROMBOCYTOPENIA [None]
  - DIARRHOEA [None]
  - NEUTROPENIA [None]
